FAERS Safety Report 7832026-X (Version None)
Quarter: 2011Q4

REPORT INFORMATION
  Report Type: 
  Country: None (occurrence: None)
  Receive Date: 20111021
  Receipt Date: 20111012
  Transmission Date: 20120403
  Serious: Yes (Other)
  Sender: FDA-Public Use
  Company Number: CA-ASTRAZENECA-2011SE62178

PATIENT
  Sex: Female

DRUGS (10)
  1. GABAPENTIN [Suspect]
     Dosage: 600 MG AM
     Route: 065
  2. ESCITALOPRAM [Suspect]
     Route: 065
  3. RABEPRAZOLE SODIUM [Suspect]
     Route: 065
  4. BENZTROPINE MESYLATE [Suspect]
     Dosage: 0.5 QHS
     Route: 065
  5. METHADONE HCL [Suspect]
     Route: 065
  6. SEROQUEL [Suspect]
     Route: 064
  7. NORTRIPTYLINE HCL [Suspect]
     Route: 065
  8. ZOPLICONE [Suspect]
     Dosage: 7.5
     Route: 065
  9. SEROQUEL [Suspect]
     Route: 064
  10. GABAPENTIN [Suspect]
     Dosage: 1200 MG HS
     Route: 065

REACTIONS (4)
  - DIARRHOEA [None]
  - HYPERTONIA [None]
  - TRISMUS [None]
  - POOR QUALITY SLEEP [None]
